FAERS Safety Report 7336212-7 (Version None)
Quarter: 2011Q1

REPORT INFORMATION
  Report Type: 
  Country: None (occurrence: None)
  Receive Date: 20110307
  Receipt Date: 20110222
  Transmission Date: 20110831
  Serious: Yes (Hospitalization, Other)
  Sender: FDA-Public Use
  Company Number: DE-PFIZER INC-2010138609

PATIENT
  Age: 59 Year
  Sex: Male

DRUGS (13)
  1. ONGLYZA [Suspect]
     Indication: DIABETES MELLITUS
     Dosage: 1 DF, 1X/DAY
     Route: 048
     Dates: start: 20100726
  2. AMLODIPINE BESILATE [Suspect]
     Dosage: 10MG, 1/2 PER DAY
  3. SIMVASTATIN [Suspect]
     Dosage: 30 MG, DAILY
     Route: 048
     Dates: start: 20080101
  4. TORASEMIDE [Suspect]
     Dosage: 20 MG, 1/2 PER DAY
  5. AVANDAMET [Concomitant]
     Dosage: 1 DF, 3X/DAY
  6. ATENOLOL [Suspect]
  7. SPIRONOLACTONE [Concomitant]
     Dosage: 50 MG, 1X/DAY
  8. ENAHEXAL [Suspect]
     Dosage: 10 MG, 2X/DAY
  9. METFORMIN HCL [Suspect]
     Dosage: 1000 MG, 2X/DAY
     Route: 048
     Dates: start: 20070101
  10. JANUMET [Concomitant]
     Dosage: 50/850 MG, 1X/DAY
  11. GODAMED [Suspect]
     Dosage: 1 DF, 1X/DAY
  12. DOCITON [Concomitant]
     Dosage: UNK
  13. FUROSEMIDE [Concomitant]

REACTIONS (7)
  - LEUKOCYTOSIS [None]
  - BLOOD ALBUMIN DECREASED [None]
  - ESCHERICHIA INFECTION [None]
  - TRANSAMINASES INCREASED [None]
  - BLOOD BILIRUBIN INCREASED [None]
  - GAMMA-GLUTAMYLTRANSFERASE INCREASED [None]
  - ASCITES [None]
